FAERS Safety Report 10035966 (Version 1)
Quarter: 2014Q1

REPORT INFORMATION
  Report Type: Spontaneous
  Country: FR (occurrence: FR)
  Receive Date: 20140325
  Receipt Date: 20140325
  Transmission Date: 20141002
  Serious: Yes (Life-Threatening, Hospitalization, Other)
  Sender: FDA-Public Use
  Company Number: FR-PFIZER INC-2014081490

PATIENT
  Age: 79 Year
  Sex: Female

DRUGS (1)
  1. SUTENT [Suspect]
     Indication: RENAL CANCER METASTATIC
     Dosage: 37.5 MG, CYCLIC
     Route: 048
     Dates: start: 20130918

REACTIONS (6)
  - Cardiac failure [Unknown]
  - Acute pulmonary oedema [Unknown]
  - Ejection fraction decreased [Unknown]
  - Stress cardiomyopathy [Unknown]
  - Platelet count decreased [Unknown]
  - Blood sodium decreased [Unknown]
